FAERS Safety Report 5826595-9 (Version None)
Quarter: 2008Q3

REPORT INFORMATION
  Report Type: 
  Country: None (occurrence: None)
  Receive Date: 20080728
  Receipt Date: 20080728
  Transmission Date: 20090109
  Serious: Yes (Other)
  Sender: FDA-Public Use
  Company Number: None

PATIENT
  Age: 34 Year
  Sex: Female
  Weight: 95.2554 kg

DRUGS (1)
  1. CHANTIX [Suspect]
     Indication: SMOKING CESSATION THERAPY
     Dosage: 1 PILL TWICE A DAY PO
     Route: 048

REACTIONS (3)
  - ACTIVITIES OF DAILY LIVING IMPAIRED [None]
  - LOSS OF EMPLOYMENT [None]
  - MAJOR DEPRESSION [None]
